FAERS Safety Report 23565870 (Version 1)
Quarter: 2024Q1

REPORT INFORMATION
  Report Type: Report from Study
  Country: US (occurrence: US)
  Receive Date: 20240226
  Receipt Date: 20240226
  Transmission Date: 20240410
  Serious: Yes (Other)
  Sender: FDA-Public Use
  Company Number: US-ABBVIE-5572681

PATIENT
  Age: 68 Year
  Sex: Female

DRUGS (3)
  1. RINVOQ [Suspect]
     Active Substance: UPADACITINIB
     Indication: Rheumatoid arthritis
     Dosage: FORM STRENGTH: 15 MILLIGRAM
     Route: 048
     Dates: start: 202312, end: 20231229
  2. RINVOQ [Suspect]
     Active Substance: UPADACITINIB
     Indication: Rheumatoid arthritis
     Dosage: FORM STRENGTH: 15 MILLIGRAM
     Route: 048
     Dates: start: 202401
  3. KEFLEX [Suspect]
     Active Substance: CEPHALEXIN
     Indication: Product used for unknown indication
     Route: 065

REACTIONS (19)
  - Anaphylactic reaction [Unknown]
  - Dyspnoea [Recovered/Resolved]
  - Culture throat positive [Unknown]
  - Influenza A virus test positive [Unknown]
  - Ear pain [Unknown]
  - Pyrexia [Unknown]
  - Dizziness [Not Recovered/Not Resolved]
  - Ear infection [Recovered/Resolved]
  - Ear infection [Recovered/Resolved]
  - Pneumonia [Unknown]
  - Pyrexia [Recovered/Resolved]
  - Fatigue [Not Recovered/Not Resolved]
  - Hyperhidrosis [Unknown]
  - Chills [Unknown]
  - Middle ear effusion [Recovered/Resolved]
  - Deafness [Not Recovered/Not Resolved]
  - Pharyngeal swelling [Unknown]
  - Ear infection [Not Recovered/Not Resolved]
  - Middle ear effusion [Recovered/Resolved]

NARRATIVE: CASE EVENT DATE: 20231201
